FAERS Safety Report 4371424-6 (Version None)
Quarter: 2004Q2

REPORT INFORMATION
  Report Type: 
  Country: None (occurrence: None)
  Receive Date: 20040607
  Receipt Date: 20040527
  Transmission Date: 20050107
  Serious: Yes (Hospitalization, Other)
  Sender: FDA-Public Use
  Company Number: PHNU2004DE01943

PATIENT
  Age: 69 Year
  Sex: Female

DRUGS (2)
  1. EXELON [Suspect]
     Dosage: 6 MG, ONCE/SINGLE
     Route: 048
     Dates: start: 20040519, end: 20040519
  2. ATROPINE [Suspect]
     Dosage: UNK, UNK
     Route: 065

REACTIONS (7)
  - ACCIDENTAL EXPOSURE [None]
  - BRADYCARDIA [None]
  - ERYTHEMA [None]
  - HYPERHIDROSIS [None]
  - HYPERTENSION [None]
  - SOMNOLENCE [None]
  - VOMITING [None]
